FAERS Safety Report 6416698-2 (Version None)
Quarter: 2009Q4

REPORT INFORMATION
  Report Type: 
  Country: None (occurrence: None)
  Receive Date: 20091027
  Receipt Date: 20091022
  Transmission Date: 20100525
  Serious: Yes (Death, Hospitalization)
  Sender: FDA-Public Use
  Company Number: IT-CELGENEUS-083-21880-09101763

PATIENT
  Sex: Female

DRUGS (3)
  1. REVLIMID [Suspect]
     Indication: B-CELL LYMPHOMA
     Route: 048
  2. BACTRIM [Concomitant]
     Indication: PROPHYLAXIS
     Route: 048
     Dates: start: 20090201
  3. ZITHROMAX [Concomitant]
     Indication: PROPHYLAXIS
     Route: 048
     Dates: start: 20090701

REACTIONS (2)
  - MULTI-ORGAN FAILURE [None]
  - SHOCK [None]
